FAERS Safety Report 7705364-9 (Version None)
Quarter: 2011Q3

REPORT INFORMATION
  Report Type: 
  Country: None (occurrence: None)
  Receive Date: 20110818
  Receipt Date: 20110804
  Transmission Date: 20111222
  Serious: Yes (Hospitalization, Other)
  Sender: FDA-Public Use
  Company Number: 2011P1008170

PATIENT
  Age: 61 Year
  Sex: Female
  Weight: 52.1637 kg

DRUGS (15)
  1. HYDROCODONE BITARTRATE [Concomitant]
  2. PREVACID [Concomitant]
  3. CALCIUM CARBONATE [Concomitant]
  4. ASPIRIN [Concomitant]
  5. VITAMIN D [Concomitant]
  6. HUMALOG [Concomitant]
  7. FENTANYL-75 [Suspect]
     Indication: PAIN
     Dosage: 2 PATCH;Q48H;TDER
     Dates: start: 20110623
  8. FENTANYL-75 [Suspect]
     Indication: PAIN
     Dosage: 2 PATCH;Q48H;TDER
     Dates: start: 20000101, end: 20110620
  9. FUROSEMIDE [Concomitant]
  10. MULTI-VITAMIN [Concomitant]
  11. LISINOPRIL [Concomitant]
  12. ERYTHROMYCIN [Suspect]
     Indication: IMPAIRED GASTRIC EMPTYING
     Dosage: 125 MG;QD;PO, 500 MG;QD;PO
     Route: 048
     Dates: start: 20080101, end: 20100801
  13. ERYTHROMYCIN [Suspect]
     Indication: IMPAIRED GASTRIC EMPTYING
     Dosage: 125 MG;QD;PO, 500 MG;QD;PO
     Route: 048
     Dates: start: 20110614
  14. VITAMIN B-12 [Concomitant]
  15. TIZANIDINE HCL [Concomitant]

REACTIONS (14)
  - WHITE BLOOD CELL COUNT DECREASED [None]
  - TREATMENT NONCOMPLIANCE [None]
  - BODY TEMPERATURE INCREASED [None]
  - BLOOD GLUCOSE INCREASED [None]
  - RED BLOOD CELL COUNT DECREASED [None]
  - ERYTHEMA [None]
  - SKIN WARM [None]
  - BENCE JONES PROTEIN URINE PRESENT [None]
  - IMPAIRED GASTRIC EMPTYING [None]
  - PLATELET COUNT DECREASED [None]
  - BLOOD PRESSURE INCREASED [None]
  - BLOOD SODIUM DECREASED [None]
  - HYPERGAMMAGLOBULINAEMIA BENIGN MONOCLONAL [None]
  - HEART RATE INCREASED [None]
